FAERS Safety Report 10420366 (Version 1)
Quarter: 2014Q3

REPORT INFORMATION
  Report Type: Spontaneous
  Country: US (occurrence: None)
  Receive Date: 20140701
  Receipt Date: 20140701
  Transmission Date: 20150326
  Serious: No
  Sender: FDA-Public Use
  Company Number: 1000064719

PATIENT
  Age: 66 Year
  Sex: Female

DRUGS (18)
  1. LINZESS [Suspect]
     Active Substance: LINACLOTIDE
     Indication: CONSTIPATION
     Route: 048
     Dates: start: 20140306, end: 20140311
  2. VITAMIN D [Concomitant]
     Active Substance: CHOLECALCIFEROL
  3. PREGNENOLONE [Concomitant]
     Active Substance: PREGNENOLONE
  4. SPIRONOLACTONE. [Concomitant]
     Active Substance: SPIRONOLACTONE
  5. GINGER ROOT (NOS) [Concomitant]
  6. PANCREATIN [Concomitant]
     Active Substance: PANCRELIPASE
  7. QVAR (BECLOMETASONE DIPROPIONATE) [Concomitant]
  8. CLONIDINE. [Concomitant]
     Active Substance: CLONIDINE
  9. ATENOLOL. [Concomitant]
     Active Substance: ATENOLOL
  10. SIMETHICONE (SIMETICONE) [Concomitant]
  11. PROBIOTIC (NOS) [Concomitant]
  12. VISTARIL [Concomitant]
     Active Substance: HYDROXYZINE PAMOATE
  13. HYDROCHLOROTHIAZIDE. [Concomitant]
     Active Substance: HYDROCHLOROTHIAZIDE
  14. TOPIRAMATE. [Concomitant]
     Active Substance: TOPIRAMATE
  15. MUCINEX (GUAIFENESIN) [Concomitant]
  16. CALCIUM [Concomitant]
     Active Substance: CALCIUM
  17. LOSARTAN [Concomitant]
     Active Substance: LOSARTAN
  18. FOLIC ACID. [Concomitant]
     Active Substance: FOLIC ACID

REACTIONS (2)
  - Tearfulness [None]
  - Malaise [None]

NARRATIVE: CASE EVENT DATE: 201403
